FAERS Safety Report 13098109 (Version 2)
Quarter: 2017Q1

REPORT INFORMATION
  Report Type: Report from Study
  Country: US (occurrence: US)
  Receive Date: 20170109
  Receipt Date: 20170119
  Transmission Date: 20170428
  Serious: Yes (Other)
  Sender: FDA-Public Use
  Company Number: US-MALLINCKRODT-T201606159

PATIENT
  Sex: Female

DRUGS (2)
  1. REPOSITORY CORTICOTROPIN INJECTION [Suspect]
     Active Substance: CORTICOTROPIN
     Indication: DERMATOMYOSITIS
     Dosage: 80 UNITS / 1 ML, 2 TIMES PER WEEK (TUESDAY AND FRIDAY)
     Route: 058
     Dates: start: 20160708
  2. PREDNISONE. [Concomitant]
     Active Substance: PREDNISONE
     Dosage: UNKNOWN
     Dates: start: 2016

REACTIONS (8)
  - Scar [Recovering/Resolving]
  - Speech disorder [Recovered/Resolved]
  - Onychoclasis [Recovered/Resolved]
  - Dysphagia [Recovered/Resolved]
  - Herpes zoster [Recovering/Resolving]
  - Anxiety [Recovering/Resolving]
  - Alopecia [Recovered/Resolved]
  - Pain of skin [Recovering/Resolving]

NARRATIVE: CASE EVENT DATE: 2016
